FAERS Safety Report 15684936 (Version 1)
Quarter: 2018Q4

REPORT INFORMATION
  Report Type: Spontaneous
  Country: US (occurrence: US)
  Receive Date: 20181204
  Receipt Date: 20181204
  Transmission Date: 20190205
  Serious: Yes (Hospitalization)
  Sender: FDA-Public Use
  Company Number: US-ANTARES PHARMA, INC.-2018-LIT-ME-0547

PATIENT
  Age: 68 Year
  Sex: Female

DRUGS (2)
  1. TRIMETHOPRIM SULFAMETHOXAZOLE [Interacting]
     Active Substance: SULFAMETHOXAZOLE\TRIMETHOPRIM
     Indication: BACTERIAL INFECTION
  2. METHOTREXATE. [Suspect]
     Active Substance: METHOTREXATE
     Indication: RHEUMATOID ARTHRITIS
     Dosage: 10 MG, WEEKLY

REACTIONS (13)
  - Stomatitis [Recovered/Resolved]
  - Influenza like illness [Recovered/Resolved]
  - Lip ulceration [Unknown]
  - Drug interaction [Recovered/Resolved]
  - Toxicity to various agents [Recovered/Resolved]
  - Rash erythematous [Recovered/Resolved]
  - Lethargy [Recovered/Resolved]
  - Hypotension [Recovered/Resolved]
  - Renal failure [Recovering/Resolving]
  - Asthenia [Recovered/Resolved]
  - Leukopenia [Unknown]
  - Hypophagia [Recovered/Resolved]
  - Oral pain [Recovered/Resolved]
